FAERS Safety Report 10776191 (Version 1)
Quarter: 2015Q1

REPORT INFORMATION
  Report Type: Spontaneous
  Country: US (occurrence: None)
  Receive Date: 20150205
  Receipt Date: 20150205
  Transmission Date: 20150721
  Serious: Yes (Hospitalization)
  Sender: FDA-Public Use
  Company Number: None

PATIENT
  Age: 86 Year
  Sex: Male
  Weight: 76.6 kg

DRUGS (11)
  1. PROTONIX [Concomitant]
     Active Substance: PANTOPRAZOLE SODIUM
  2. NTG [Concomitant]
     Active Substance: NITROGLYCERIN
  3. LIPITOR [Concomitant]
     Active Substance: ATORVASTATIN CALCIUM
  4. KDUR [Concomitant]
  5. ALPRAZOLAM. [Concomitant]
     Active Substance: ALPRAZOLAM
  6. PLAVIX [Suspect]
     Active Substance: CLOPIDOGREL BISULFATE
     Indication: CORONARY ARTERY DISEASE
     Dosage: RECENT, 75MG, DAILY, PO
     Route: 048
  7. PRINIVIL [Concomitant]
     Active Substance: LISINOPRIL
  8. XARELTO [Suspect]
     Active Substance: RIVAROXABAN
     Indication: CORONARY ARTERY DISEASE
     Dosage: CHRONIC, 20MG, DAILY WITH QPM MEAL, PO
  9. PLAVIX [Suspect]
     Active Substance: CLOPIDOGREL BISULFATE
     Indication: STENT PLACEMENT
     Dosage: RECENT, 75MG, DAILY, PO
     Route: 048
  10. ECOTRIN [Suspect]
     Active Substance: ASPIRIN
     Route: 048
  11. COREG [Concomitant]
     Active Substance: CARVEDILOL

REACTIONS (3)
  - Gastrointestinal haemorrhage [None]
  - Haemorrhagic anaemia [None]
  - Diverticulum intestinal haemorrhagic [None]

NARRATIVE: CASE EVENT DATE: 20141019
